FAERS Safety Report 4749880-0 (Version None)
Quarter: 2005Q3

REPORT INFORMATION
  Report Type: 
  Country: None (occurrence: None)
  Receive Date: 20050818
  Receipt Date: 20050802
  Transmission Date: 20060218
  Serious: Yes (Death)
  Sender: FDA-Public Use
  Company Number: 2005001485

PATIENT
  Age: 68 Year
  Sex: Female
  Weight: 81.6475 kg

DRUGS (7)
  1. TARCEVA [Suspect]
     Indication: LUNG NEOPLASM MALIGNANT
     Dosage: 150 MG (QD), ORAL
     Route: 048
     Dates: start: 20050105, end: 20050128
  2. CARDIZEM [Concomitant]
  3. LASIX [Concomitant]
  4. WARFARIN (WARFARIN) [Concomitant]
  5. ADVAIR DISKUS 100/50 [Concomitant]
  6. OXYCODONE HCL [Concomitant]
  7. ALLOPURINOL [Concomitant]

REACTIONS (3)
  - CARDIAC ARREST [None]
  - PULMONARY TOXICITY [None]
  - RESPIRATORY FAILURE [None]
